FAERS Safety Report 10757241 (Version 1)
Quarter: 2015Q1

REPORT INFORMATION
  Report Type: Spontaneous
  Country: KR (occurrence: None)
  Receive Date: 20150130
  Receipt Date: 20150130
  Transmission Date: 20150721
  Serious: Yes (Hospitalization)
  Sender: FDA-Public Use
  Company Number: 2720783

PATIENT
  Age: 7 Year
  Sex: Male
  Weight: 22.3 kg

DRUGS (5)
  1. (DEXAMETHASONE) [Concomitant]
     Active Substance: DEXAMETHASONE
  2. (CYTARABINE) [Suspect]
     Active Substance: CYTARABINE
     Indication: ACUTE LYMPHOCYTIC LEUKAEMIA
     Route: 037
  3. (L-ASPARAGINASE) [Concomitant]
  4. (VINCRISTINE) [Concomitant]
     Active Substance: VINCRISTINE
  5. (METHOTREXATE) [Concomitant]
     Active Substance: METHOTREXATE

REACTIONS (4)
  - Cerebral ischaemia [None]
  - Leukoencephalopathy [None]
  - Cerebral infarction [None]
  - Cerebral vasoconstriction [None]
